FAERS Safety Report 6880293-1 (Version None)
Quarter: 2010Q3

REPORT INFORMATION
  Report Type: 
  Country: None (occurrence: None)
  Receive Date: 20100728
  Receipt Date: 20100722
  Transmission Date: 20110219
  Serious: Yes (Hospitalization, Other)
  Sender: FDA-Public Use
  Company Number: US-ROCHE-571710

PATIENT
  Sex: Female
  Weight: 1.9 kg

DRUGS (3)
  1. PEGINTERFERON ALFA-2A [Suspect]
     Indication: HEPATITIS C
     Route: 064
     Dates: start: 20071130
  2. RIBASPHERE [Suspect]
     Indication: HEPATITIS C
     Route: 064
     Dates: start: 20071130, end: 20080620
  3. METHADONE HCL [Suspect]
     Indication: DRUG DEPENDENCE
     Route: 062

REACTIONS (3)
  - BLOOD BILIRUBIN INCREASED [None]
  - NEONATAL RESPIRATORY DISTRESS SYNDROME [None]
  - PREMATURE BABY [None]
